FAERS Safety Report 9559995 (Version 1)
Quarter: 2013Q3

REPORT INFORMATION
  Report Type: Spontaneous
  Country: US (occurrence: None)
  Receive Date: 20130821
  Receipt Date: 20130821
  Transmission Date: 20140515
  Serious: Yes (Other)
  Sender: FDA-Public Use
  Company Number: 1000045161

PATIENT
  Age: 70 Year
  Sex: Female

DRUGS (4)
  1. TUDORZA PRESSAIR [Suspect]
     Indication: CHRONIC OBSTRUCTIVE PULMONARY DISEASE
     Route: 055
     Dates: start: 201303
  2. ADVAIR (SERETIDE) [Concomitant]
  3. ALBUTEROL [Concomitant]
  4. PULMICORT (BUDESONIDE) [Concomitant]

REACTIONS (1)
  - Myalgia [None]
